FAERS Safety Report 5981704-6 (Version None)
Quarter: 2008Q4

REPORT INFORMATION
  Report Type: 
  Country: None (occurrence: None)
  Receive Date: 20081205
  Receipt Date: 20081128
  Transmission Date: 20090506
  Serious: No
  Sender: FDA-Public Use
  Company Number: CA-ELI_LILLY_AND_COMPANY-CA200812000393

PATIENT
  Age: 58 Year
  Sex: Male

DRUGS (5)
  1. CYMBALTA [Suspect]
     Indication: ANXIETY
     Dosage: 30 MG, UNK
     Dates: start: 20080911
  2. RITALIN [Concomitant]
     Dosage: 20 MG, UNK
  3. VALIUM [Concomitant]
     Dosage: 5 MG, UNK
  4. ATACAND [Concomitant]
     Indication: BLOOD PRESSURE
     Dosage: 16 MG, UNK
  5. ALCOHOL [Concomitant]

REACTIONS (1)
  - GAMMA-GLUTAMYLTRANSFERASE INCREASED [None]
